FAERS Safety Report 12517361 (Version 2)
Quarter: 2016Q3

REPORT INFORMATION
  Report Type: Spontaneous
  Country: US (occurrence: US)
  Receive Date: 20160630
  Receipt Date: 20160712
  Transmission Date: 20161109
  Serious: Yes (Hospitalization)
  Sender: FDA-Public Use
  Company Number: US-BRISTOL-MYERS SQUIBB COMPANY-BMS-2016-052800

PATIENT
  Age: 9 Decade
  Sex: Female

DRUGS (1)
  1. YERVOY [Suspect]
     Active Substance: IPILIMUMAB
     Indication: ADJUVANT THERAPY
     Dosage: 10 MG/KG, UNK
     Route: 042
     Dates: end: 201602

REACTIONS (4)
  - Myopathy [Unknown]
  - Off label use [Unknown]
  - Colitis [Unknown]
  - Muscular weakness [Unknown]
